FAERS Safety Report 8431506-6 (Version None)
Quarter: 2012Q2

REPORT INFORMATION
  Report Type: 
  Country: None (occurrence: None)
  Receive Date: 20120604
  Receipt Date: 20120519
  Transmission Date: 20120825
  Serious: Yes (Other)
  Sender: FDA-Public Use
  Company Number: CRC-12-181

PATIENT
  Sex: Female
  Weight: 68.9467 kg

DRUGS (2)
  1. ALENDRONATE SODIUM [Suspect]
     Indication: OSTEOPOROSIS
     Dosage: 1 TAB BY MOUTH ONCE/WEEK
     Route: 048
     Dates: end: 20120401
  2. OSTEO BI-FLEX [Concomitant]

REACTIONS (5)
  - JOINT SWELLING [None]
  - MOBILITY DECREASED [None]
  - ARTHRALGIA [None]
  - BACK PAIN [None]
  - ASTHENIA [None]
